FAERS Safety Report 9909977 (Version 2)
Quarter: 2014Q1

REPORT INFORMATION
  Report Type: Spontaneous
  Country: US (occurrence: US)
  Receive Date: 20140219
  Receipt Date: 20140219
  Transmission Date: 20141002
  Serious: No
  Sender: FDA-Public Use
  Company Number: US-GILEAD-2012-0054242

PATIENT
  Sex: Male

DRUGS (1)
  1. LETAIRIS [Suspect]
     Indication: PULMONARY ARTERIAL HYPERTENSION
     Dosage: 10 MG, UNK
     Route: 048
     Dates: start: 20110813, end: 20120321

REACTIONS (4)
  - Dehydration [Recovered/Resolved]
  - Abdominal distension [Recovered/Resolved]
  - Asthenia [Recovered/Resolved]
  - Fluid overload [Recovered/Resolved]
